FAERS Safety Report 6856592-6 (Version None)
Quarter: 2010Q3

REPORT INFORMATION
  Report Type: 
  Country: None (occurrence: None)
  Receive Date: 20100719
  Receipt Date: 20100706
  Transmission Date: 20110219
  Serious: Yes (Other)
  Sender: FDA-Public Use
  Company Number: EC-PFIZER INC-2010085953

PATIENT
  Sex: Female

DRUGS (1)
  1. SUTENT [Suspect]
     Indication: RENAL CANCER
     Dosage: 50 MG, 1X/DAY
     Route: 048
     Dates: start: 20100401, end: 20100501

REACTIONS (4)
  - DECREASED APPETITE [None]
  - FATIGUE [None]
  - HYPERBILIRUBINAEMIA [None]
  - HYPERTRANSAMINASAEMIA [None]
